FAERS Safety Report 20988375 (Version 4)
Quarter: 2022Q3

REPORT INFORMATION
  Report Type: Spontaneous
  Country: US (occurrence: US)
  Receive Date: 20220621
  Receipt Date: 20220722
  Transmission Date: 20221026
  Serious: No
  Sender: FDA-Public Use
  Company Number: US-PFIZER INC-PV202200006132

PATIENT

DRUGS (1)
  1. TOVIAZ [Suspect]
     Active Substance: FESOTERODINE FUMARATE
     Dosage: UNK

REACTIONS (5)
  - Frustration tolerance decreased [Unknown]
  - Confusional state [Unknown]
  - Malaise [Unknown]
  - Cerebral disorder [Unknown]
  - Hypoacusis [Unknown]
